FAERS Safety Report 19325698 (Version 1)
Quarter: 2021Q2

REPORT INFORMATION
  Report Type: Report from Study
  Country: BR (occurrence: BR)
  Receive Date: 20210528
  Receipt Date: 20210528
  Transmission Date: 20210717
  Serious: Yes (Other)
  Sender: FDA-Public Use
  Company Number: NVSC2021BR115168

PATIENT
  Sex: Male

DRUGS (1)
  1. RITALINA LA [Suspect]
     Active Substance: METHYLPHENIDATE HYDROCHLORIDE
     Indication: PRODUCT USED FOR UNKNOWN INDICATION
     Dosage: 10 MG
     Route: 065
     Dates: start: 202104, end: 202104

REACTIONS (4)
  - Mobility decreased [Unknown]
  - Epilepsy [Recovering/Resolving]
  - Pain [Unknown]
  - Ill-defined disorder [Unknown]
